FAERS Safety Report 11008902 (Version 1)
Quarter: 2015Q2

REPORT INFORMATION
  Report Type: Spontaneous
  Country: US (occurrence: US)
  Receive Date: 20150410
  Receipt Date: 20150410
  Transmission Date: 20150821
  Serious: No
  Sender: FDA-Public Use
  Company Number: US-BAUSCH-BL-2015-000135

PATIENT
  Age: 88 Year
  Sex: Female

DRUGS (1)
  1. ALDARA [Suspect]
     Active Substance: IMIQUIMOD
     Indication: NEOPLASM MALIGNANT
     Dosage: 1 PACKET AT BEDTIME TO THE FACE ON MONDAYS, WEDNESDAYS, AND FRIDAYS
     Route: 061
     Dates: start: 20141105, end: 20141217

REACTIONS (1)
  - Diarrhoea [Not Recovered/Not Resolved]

NARRATIVE: CASE EVENT DATE: 20141210
